FAERS Safety Report 11439461 (Version 2)
Quarter: 2018Q1

REPORT INFORMATION
  Report Type: Report from Study
  Country: US (occurrence: US)
  Receive Date: 20150901
  Receipt Date: 20180206
  Transmission Date: 20180508
  Serious: Yes (Death)
  Sender: FDA-Public Use
  Company Number: PHEH2014US011369

PATIENT
  Age: 50 Year
  Sex: Female

DRUGS (2)
  1. TOBI [Suspect]
     Active Substance: TOBRAMYCIN
     Indication: CYSTIC FIBROSIS
     Route: 055
     Dates: end: 20140601
  2. TOBI PODHALER [Suspect]
     Active Substance: TOBRAMYCIN
     Indication: CYSTIC FIBROSIS
     Dosage: UNK, BID (TWICE DAILY) AND TAKEN EVERY OTHER MONTH 2 TIMES A DAY
     Route: 065
     Dates: start: 201307, end: 2014

REACTIONS (6)
  - Hypoacusis [Unknown]
  - Death [Fatal]
  - Laryngitis [Unknown]
  - Forced expiratory volume decreased [Recovered/Resolved]
  - Wheezing [Unknown]
  - Throat irritation [Recovered/Resolved]

NARRATIVE: CASE EVENT DATE: 20140417
